FAERS Safety Report 7249619-3 (Version None)
Quarter: 2011Q1

REPORT INFORMATION
  Report Type: 
  Country: None (occurrence: None)
  Receive Date: 20110128
  Receipt Date: 20101215
  Transmission Date: 20110831
  Serious: Yes (Other)
  Sender: FDA-Public Use
  Company Number: US-BAYER-201023019NA

PATIENT
  Sex: Female

DRUGS (6)
  1. FIORICET [Concomitant]
  2. MAXALT-MLT [Concomitant]
  3. VERAPAMIL [Concomitant]
  4. YAZ [Suspect]
     Indication: PRODUCT USED FOR UNKNOWN INDICATION
     Dosage: UNK UNK, QD
     Route: 048
     Dates: end: 20090715
  5. PROMETHAZINE [Concomitant]
  6. ADDERALL XR 10 [Concomitant]

REACTIONS (9)
  - DYSARTHRIA [None]
  - DISORIENTATION [None]
  - ASTHENIA [None]
  - HEMIPARESIS [None]
  - CEREBROVASCULAR ACCIDENT [None]
  - TRANSIENT ISCHAEMIC ATTACK [None]
  - APHASIA [None]
  - DYSPHAGIA [None]
  - FATIGUE [None]
